FAERS Safety Report 7821244-2 (Version None)
Quarter: 2011Q4

REPORT INFORMATION
  Report Type: 
  Country: None (occurrence: None)
  Receive Date: 20111018
  Receipt Date: 20111013
  Transmission Date: 20120403
  Serious: Yes (Hospitalization)
  Sender: FDA-Public Use
  Company Number: AU-NOVOPROD-336449

PATIENT

DRUGS (11)
  1. ASPIRIN [Concomitant]
     Dosage: 100 MG, QD
     Dates: start: 20111003, end: 20111004
  2. LIRAGLUTIDE FLEXPEN [Suspect]
     Dosage: 1.5 MG, QD
     Route: 058
     Dates: start: 20111010
  3. ASPIRIN [Concomitant]
     Indication: SUPRAVENTRICULAR TACHYCARDIA
     Dosage: 150 MG, QD
     Dates: start: 20111003, end: 20111003
  4. HEPARIN [Concomitant]
     Indication: SUPRAVENTRICULAR TACHYCARDIA
     Dosage: 5000 U, QD
     Dates: start: 20111003, end: 20111003
  5. GLYCERYL TRINITRATE [Concomitant]
     Indication: SUPRAVENTRICULAR TACHYCARDIA
     Dosage: 25 MG, QD
     Dates: start: 20111003, end: 20111003
  6. MORPHINE [Concomitant]
     Indication: SUPRAVENTRICULAR TACHYCARDIA
     Dosage: 6 MG, QD
     Dates: start: 20111004, end: 20111004
  7. SOTALOL HCL [Concomitant]
     Indication: SUPRAVENTRICULAR TACHYCARDIA
     Dosage: 80 MG, QD
     Dates: start: 20111003, end: 20111005
  8. ACETAMINOPHEN [Concomitant]
     Indication: SUPRAVENTRICULAR TACHYCARDIA
     Dosage: 1 G, PRN
     Dates: start: 20111003, end: 20111004
  9. LIGNOCAINE                         /00033401/ [Concomitant]
     Indication: SUPRAVENTRICULAR TACHYCARDIA
     Dosage: 1 %, QD (LOCAL ADMINISTRATION)
     Dates: start: 20111004, end: 20111004
  10. LIRAGLUTIDE FLEXPEN [Suspect]
     Indication: OBESITY
     Dosage: 3.0 MG, QD
     Route: 058
     Dates: start: 20110615, end: 20111003
  11. MIDAZOLAM HCL [Concomitant]
     Indication: SUPRAVENTRICULAR TACHYCARDIA
     Dosage: 1.2 MG, QD
     Dates: start: 20111004, end: 20111004

REACTIONS (1)
  - SUPRAVENTRICULAR TACHYCARDIA [None]
